FAERS Safety Report 19279431 (Version 2)
Quarter: 2021Q2

REPORT INFORMATION
  Report Type: Report from Study
  Country: BE (occurrence: BE)
  Receive Date: 20210520
  Receipt Date: 20210630
  Transmission Date: 20210717
  Serious: Yes (Other)
  Sender: FDA-Public Use
  Company Number: BE-BRISTOL-MYERS SQUIBB COMPANY-BMS-2021-024633

PATIENT
  Age: 59 Year
  Sex: Female

DRUGS (2)
  1. NIVOLUMAB [Suspect]
     Active Substance: NIVOLUMAB
     Indication: MALIGNANT MELANOMA
     Dosage: UNK UNK, Q3WK
     Route: 042
     Dates: start: 20210304
  2. IPILIMUMAB [Suspect]
     Active Substance: IPILIMUMAB
     Indication: MALIGNANT MELANOMA
     Dosage: UNK UNK, Q3WK
     Route: 042
     Dates: start: 20210304

REACTIONS (10)
  - Brain oedema [Not Recovered/Not Resolved]
  - Neck pain [Not Recovered/Not Resolved]
  - Sinusitis [Unknown]
  - Vision blurred [Not Recovered/Not Resolved]
  - Fall [Unknown]
  - Blister [Recovering/Resolving]
  - Skin exfoliation [Unknown]
  - Pruritus [Unknown]
  - Rash [Not Recovered/Not Resolved]
  - Vertigo [Not Recovered/Not Resolved]

NARRATIVE: CASE EVENT DATE: 20210311
